FAERS Safety Report 10665003 (Version 1)
Quarter: 2014Q4

REPORT INFORMATION
  Report Type: Spontaneous
  Country: TR (occurrence: TR)
  Receive Date: 20141219
  Receipt Date: 20141219
  Transmission Date: 20150529
  Serious: Yes (Other)
  Sender: FDA-Public Use
  Company Number: TR-BANPHARM-20143310

PATIENT
  Age: 58 Year
  Sex: Male

DRUGS (2)
  1. METHOTREXATE UNKNOWN [Suspect]
     Active Substance: METHOTREXATE
     Indication: MYCOSIS FUNGOIDES STAGE II
     Dosage: 50 MG/WEEK,
  2. BEXAROTENE UNKNOWN PRODUCT [Suspect]
     Active Substance: BEXAROTENE
     Indication: MYCOSIS FUNGOIDES STAGE II
     Dosage: 450 MG, QD,

REACTIONS (5)
  - Hypothyroidism [Unknown]
  - Genital ulceration [Unknown]
  - Weight decreased [Unknown]
  - Mouth ulceration [Unknown]
  - Hypertriglyceridaemia [Unknown]
